FAERS Safety Report 20432032 (Version 1)
Quarter: 2022Q1

REPORT INFORMATION
  Report Type: Other
  Country: CN (occurrence: None)
  Receive Date: 20220204
  Receipt Date: 20220204
  Transmission Date: 20220423
  Serious: Yes (Other)
  Sender: FDA-Public Use
  Company Number: CN-ROCHE-3019494

PATIENT

DRUGS (2)
  1. BEVACIZUMAB [Suspect]
     Active Substance: BEVACIZUMAB
     Indication: Rectal cancer metastatic
     Dosage: ON DAY 1 ON THE BASIS OF CONTROL GROUP TREATMENT. THREE WEEKS IS ONE CYCLE AND THE COURSE OF TREATME
     Route: 042
  2. CAPECITABINE [Suspect]
     Active Substance: CAPECITABINE
     Indication: Rectal cancer metastatic
     Dosage: 2000 MG/M2 IN 2 DIVIDED DOSES FOR 2 WEEKS
     Route: 048

REACTIONS (1)
  - Myelosuppression [Unknown]
